FAERS Safety Report 14405793 (Version 1)
Quarter: 2018Q1

REPORT INFORMATION
  Report Type: Report from Study
  Country: US (occurrence: US)
  Receive Date: 20180118
  Receipt Date: 20180118
  Transmission Date: 20180509
  Serious: Yes (Other)
  Sender: FDA-Public Use
  Company Number: US-MYLANLABS-2018M1003565

PATIENT
  Age: 34 Year
  Sex: Female

DRUGS (2)
  1. GLATIRAMER ACETATE INJECTION [Suspect]
     Active Substance: GLATIRAMER ACETATE
     Indication: RELAPSING-REMITTING MULTIPLE SCLEROSIS
     Dosage: 40 MG, 3XW
     Route: 058
     Dates: start: 20171227
  2. PROZAC [Concomitant]
     Active Substance: FLUOXETINE HYDROCHLORIDE
     Indication: DEPRESSION

REACTIONS (5)
  - Mood swings [Not Recovered/Not Resolved]
  - Depressed mood [Not Recovered/Not Resolved]
  - Fatigue [Unknown]
  - Suicidal ideation [Unknown]
  - Injection site pain [Not Recovered/Not Resolved]
